FAERS Safety Report 24554678 (Version 1)
Quarter: 2024Q4

REPORT INFORMATION
  Report Type: Spontaneous
  Country: IN (occurrence: IN)
  Receive Date: 20241028
  Receipt Date: 20241028
  Transmission Date: 20250115
  Serious: Yes (Hospitalization)
  Sender: BIOGEN
  Company Number: IN-BIOGEN-2024BI01258234

PATIENT
  Sex: Female

DRUGS (1)
  1. PLEGRIDY [Suspect]
     Active Substance: PEGINTERFERON BETA-1A
     Indication: Multiple sclerosis
     Route: 050
     Dates: start: 20230506, end: 20241006

REACTIONS (5)
  - Multiple sclerosis relapse [Unknown]
  - Drug ineffective [Unknown]
  - Hypoaesthesia [Not Recovered/Not Resolved]
  - Urticaria [Recovered/Resolved]
  - Constipation [Recovered/Resolved]

NARRATIVE: CASE EVENT DATE: 20230101
